FAERS Safety Report 6733948-3 (Version None)
Quarter: 2010Q2

REPORT INFORMATION
  Report Type: 
  Country: None (occurrence: None)
  Receive Date: 20100520
  Receipt Date: 20100507
  Transmission Date: 20101027
  Serious: Yes (Life-Threatening)
  Sender: FDA-Public Use
  Company Number: FR-PFIZER INC-2010057725

PATIENT
  Age: 58 Year
  Sex: Male

DRUGS (7)
  1. CHAMPIX [Suspect]
     Indication: TOBACCO ABUSE
     Dosage: 0.5 MG, 2X/DAY
     Route: 048
     Dates: start: 20100216, end: 20100222
  2. CHAMPIX [Suspect]
     Dosage: 1 MG, 2X/DAY
     Route: 048
     Dates: start: 20100223, end: 20100224
  3. BUFLOMEDIL [Concomitant]
     Dosage: UNK
  4. ZOCOR [Concomitant]
     Dosage: UNK
  5. TAREG [Concomitant]
     Dosage: UNK
  6. SPIRIVA [Concomitant]
     Dosage: UNK
  7. SINTROM [Concomitant]
     Dosage: UNK

REACTIONS (2)
  - GENERAL PHYSICAL HEALTH DETERIORATION [None]
  - TACHYCARDIA [None]
